FAERS Safety Report 8407121-7 (Version None)
Quarter: 2012Q2

REPORT INFORMATION
  Report Type: 
  Country: None (occurrence: None)
  Receive Date: 20120604
  Receipt Date: 20120528
  Transmission Date: 20120825
  Serious: Yes (Death)
  Sender: FDA-Public Use
  Company Number: FR-ROCHE-1072234

PATIENT

DRUGS (26)
  1. MABTHERA [Suspect]
     Indication: B-CELL LYMPHOMA
     Dosage: INDUCTION TREATMENT
     Dates: start: 20081224
  2. MABTHERA [Suspect]
     Dates: start: 20100528
  3. MABTHERA [Suspect]
     Dates: start: 20090119
  4. MABTHERA [Suspect]
     Dates: start: 20100120
  5. MABTHERA [Suspect]
     Dates: start: 20090519
  6. MABTHERA [Suspect]
     Dates: start: 20100827
  7. CYCLOPHOSPHAMIDE [Concomitant]
     Dates: start: 20090119
  8. CYCLOPHOSPHAMIDE [Concomitant]
     Dates: start: 20090519
  9. MABTHERA [Suspect]
     Dates: start: 20090412
  10. MABTHERA [Suspect]
     Dates: start: 20101129
  11. FLUDARABINE PHOSPHATE [Concomitant]
     Dates: start: 20090119
  12. FLUDARABINE PHOSPHATE [Concomitant]
     Dates: start: 20090412
  13. CYCLOPHOSPHAMIDE [Concomitant]
     Dosage: INDUCTION TREATMENT
     Dates: start: 20081224
  14. MABTHERA [Suspect]
     Dosage: MAINTAINACE TREATMENT
     Dates: start: 20090713
  15. FLUDARABINE PHOSPHATE [Concomitant]
     Dates: start: 20081224
  16. FLUDARABINE PHOSPHATE [Concomitant]
     Dates: start: 20090218
  17. CYCLOPHOSPHAMIDE [Concomitant]
     Dates: start: 20090218
  18. MABTHERA [Suspect]
     Dates: start: 20091021
  19. MABTHERA [Suspect]
     Dates: start: 20110303
  20. MABTHERA [Suspect]
     Dates: start: 20090316
  21. MABTHERA [Suspect]
     Dates: start: 20110701
  22. FLUDARABINE PHOSPHATE [Concomitant]
     Dates: start: 20090316
  23. CYCLOPHOSPHAMIDE [Concomitant]
     Dates: start: 20090412
  24. MABTHERA [Suspect]
     Dates: start: 20090218
  25. FLUDARABINE PHOSPHATE [Concomitant]
     Dosage: INDUCTION TREATMENT
     Dates: start: 20090519
  26. CYCLOPHOSPHAMIDE [Concomitant]
     Dates: start: 20090316

REACTIONS (2)
  - NEUTROPENIA [None]
  - ACUTE MYELOID LEUKAEMIA [None]
